FAERS Safety Report 6012348-8 (Version None)
Quarter: 2008Q4

REPORT INFORMATION
  Report Type: 
  Country: None (occurrence: None)
  Receive Date: 20081218
  Receipt Date: 20080828
  Transmission Date: 20090506
  Serious: No
  Sender: FDA-Public Use
  Company Number: US-ASTRAZENECA-2008UW17772

PATIENT
  Age: 36 Year
  Sex: Female
  Weight: 71.7 kg

DRUGS (2)
  1. SYMBICORT [Suspect]
     Indication: EMPHYSEMA
     Dosage: 80/4.5 TWO PUFFS TWICE A DAY
     Route: 055
  2. SPIRIVA [Concomitant]

REACTIONS (2)
  - SWELLING [None]
  - WEIGHT INCREASED [None]
